FAERS Safety Report 6803608-9 (Version None)
Quarter: 2010Q2

REPORT INFORMATION
  Report Type: 
  Country: None (occurrence: None)
  Receive Date: 20100628
  Receipt Date: 20100616
  Transmission Date: 20101027
  Serious: Yes (Hospitalization)
  Sender: FDA-Public Use
  Company Number: CH-PFIZER INC-2010075173

PATIENT
  Age: 64 Year
  Sex: Male

DRUGS (9)
  1. NEURONTIN [Suspect]
     Indication: MONONEUROPATHY
     Dosage: 800 MG, 4X/DAY
     Route: 048
  2. RIVOTRIL [Suspect]
     Dosage: 0.5 MG, 2X/DAY
     Route: 048
  3. ANXIOLIT [Suspect]
     Dosage: 15 MG, 4X/DAY
     Route: 048
  4. TRAMAL [Suspect]
     Dosage: 10 MG, 3X/DAY
     Route: 048
  5. ASPIRIN [Concomitant]
     Dosage: 100 MG, 1X/DAY
     Route: 048
  6. SIMVASTATIN [Concomitant]
     Dosage: 20 MG, 1X/DAY
     Route: 048
  7. SERETIDE [Concomitant]
     Dosage: 500 UG, 2X/DAY
     Route: 055
  8. SPIRIVA [Concomitant]
     Dosage: 18 UG, 1X/DAY
     Route: 055
  9. DOSPIR [Concomitant]
     Dosage: 1 DF, 4X/DAY
     Route: 055

REACTIONS (1)
  - RESPIRATORY DEPRESSION [None]
